FAERS Safety Report 4455678-3 (Version None)
Quarter: 2004Q3

REPORT INFORMATION
  Report Type: 
  Country: None (occurrence: None)
  Receive Date: 20040917
  Receipt Date: 20040830
  Transmission Date: 20050211
  Serious: Yes (Hospitalization, Other)
  Sender: FDA-Public Use
  Company Number: USA040876940

PATIENT
  Age: 73 Year
  Sex: Male

DRUGS (3)
  1. ZYPREXA [Suspect]
     Indication: SLEEP DISORDER THERAPY
     Dosage: 10 MG IN THE EVENING
     Dates: start: 20040301
  2. LITHIUM [Concomitant]
  3. COUMADIN [Concomitant]

REACTIONS (18)
  - APHASIA [None]
  - CHOLECYSTITIS [None]
  - CONFUSIONAL STATE [None]
  - DEHYDRATION [None]
  - DROOLING [None]
  - EPISTAXIS [None]
  - FALL [None]
  - GENERAL PHYSICAL HEALTH DETERIORATION [None]
  - HIP FRACTURE [None]
  - LABORATORY TEST ABNORMAL [None]
  - LIP DISORDER [None]
  - MUSCLE RIGIDITY [None]
  - PANCREATITIS [None]
  - PNEUMONIA [None]
  - RENAL FUNCTION TEST ABNORMAL [None]
  - SOMNOLENCE [None]
  - TREMOR [None]
  - WHITE BLOOD CELL COUNT INCREASED [None]
